FAERS Safety Report 9267333 (Version 1)
Quarter: 2013Q2

REPORT INFORMATION
  Report Type: Spontaneous
  Country: US (occurrence: US)
  Receive Date: 20130502
  Receipt Date: 20130502
  Transmission Date: 20140414
  Serious: No
  Sender: FDA-Public Use
  Company Number: US-BAYER-2013-054771

PATIENT
  Age: 32 Year
  Sex: Male
  Weight: 97.96 kg

DRUGS (1)
  1. ALEVE TABLET [Suspect]
     Indication: ARTHRITIS
     Dosage: 2 DF, QD
     Route: 048
     Dates: start: 20130403, end: 20130419

REACTIONS (2)
  - Drug ineffective [None]
  - Incorrect drug administration duration [None]
